FAERS Safety Report 19502137 (Version 1)
Quarter: 2021Q3

REPORT INFORMATION
  Report Type: Spontaneous
  Country: US (occurrence: US)
  Receive Date: 20210707
  Receipt Date: 20210707
  Transmission Date: 20211014
  Serious: No
  Sender: FDA-Public Use
  Company Number: US-MSNLABS-2021MSNSPO00180

PATIENT

DRUGS (1)
  1. PREGABALIN CAPSULES 75 MG [Suspect]
     Active Substance: PREGABALIN
     Indication: DIABETIC NEUROPATHY
     Route: 048
     Dates: start: 2019

REACTIONS (2)
  - Product substitution issue [Unknown]
  - Drug ineffective [Unknown]
